FAERS Safety Report 9228204 (Version 1)
Quarter: 2013Q2

REPORT INFORMATION
  Report Type: Report from Study
  Country: US (occurrence: US)
  Receive Date: 20130412
  Receipt Date: 20130412
  Transmission Date: 20140414
  Serious: Yes (Disabling, Other)
  Sender: FDA-Public Use
  Company Number: US-ROCHE-1209828

PATIENT
  Sex: 0

DRUGS (5)
  1. TENECTEPLASE [Suspect]
     Indication: PERIPHERAL ISCHAEMIA
     Dosage: 0.5MG/H
     Route: 042
  2. ASPIRIN [Suspect]
     Indication: THROMBOLYSIS
     Route: 065
  3. CLOPIDOGREL [Suspect]
     Indication: THROMBOLYSIS
     Route: 065
  4. HEPARIN [Suspect]
     Indication: THROMBOLYSIS
     Dosage: 100 TO 500 U/H
     Route: 065
  5. TIROFIBAN [Suspect]
     Indication: THROMBOLYSIS
     Dosage: 30 MIN BOLUS OF 0.4 MCG/KG/MIN, 8-H PERI-AND POSTPROCEDURAL DRIPS OF 0.1
     Route: 065

REACTIONS (2)
  - Haematoma [Unknown]
  - Amputation [Unknown]
